FAERS Safety Report 4907276-2 (Version None)
Quarter: 2006Q1

REPORT INFORMATION
  Report Type: 
  Country: None (occurrence: None)
  Receive Date: 20060207
  Receipt Date: 20060125
  Transmission Date: 20060701
  Serious: Yes (Other)
  Sender: FDA-Public Use
  Company Number: 2005055919

PATIENT
  Age: 55 Year
  Sex: Female

DRUGS (3)
  1. CELEBREX [Suspect]
     Indication: ILL-DEFINED DISORDER
     Dosage: 200 MG
     Dates: end: 20010101
  2. VIOXX [Suspect]
     Indication: ARTHRITIS
     Dosage: 12.5 MG (1 IN 1 D),
     Dates: start: 20010326
  3. MULTIVITAMIN [Concomitant]

REACTIONS (24)
  - ANGINA PECTORIS [None]
  - ANXIETY DISORDER [None]
  - AORTIC VALVE INCOMPETENCE [None]
  - ARTERIOSCLEROSIS CORONARY ARTERY [None]
  - ATRIAL TACHYCARDIA [None]
  - BLOOD GLUCOSE ABNORMAL [None]
  - CARDIAC DISORDER [None]
  - CORONARY ARTERY DISEASE [None]
  - CORONARY ARTERY OCCLUSION [None]
  - DIARRHOEA [None]
  - DILATATION ATRIAL [None]
  - DIZZINESS [None]
  - HYPERHIDROSIS [None]
  - HYPERLIPIDAEMIA [None]
  - HYPERTENSION [None]
  - HYPOTENSION [None]
  - INJURY [None]
  - MITRAL VALVE PROLAPSE [None]
  - MYOCARDIAL ISCHAEMIA [None]
  - PALPITATIONS [None]
  - SUPRAVENTRICULAR TACHYCARDIA [None]
  - TRICUSPID VALVE INCOMPETENCE [None]
  - VENTRICULAR EXTRASYSTOLES [None]
  - VOMITING [None]
